FAERS Safety Report 6336473-7 (Version None)
Quarter: 2009Q3

REPORT INFORMATION
  Report Type: 
  Country: None (occurrence: None)
  Receive Date: 20090901
  Receipt Date: 20090827
  Transmission Date: 20100115
  Serious: Yes (Other)
  Sender: FDA-Public Use
  Company Number: A0804751A

PATIENT
  Age: 51 Year
  Sex: Female

DRUGS (3)
  1. WELLBUTRIN SR [Suspect]
     Indication: DEPRESSION
     Dosage: 1TAB TWICE PER DAY
     Route: 048
     Dates: start: 20080101, end: 20090702
  2. ULTRAM [Suspect]
     Indication: DRUG USE FOR UNKNOWN INDICATION
     Route: 048
  3. OTHER MEDICATIONS [Concomitant]

REACTIONS (1)
  - CONVULSION [None]
